FAERS Safety Report 17292714 (Version 1)
Quarter: 2020Q1

REPORT INFORMATION
  Report Type: Spontaneous
  Country: US (occurrence: US)
  Receive Date: 20200119
  Receipt Date: 20200119
  Transmission Date: 20200409
  Serious: Yes (Hospitalization)
  Sender: FDA-Public Use
  Company Number: None

PATIENT
  Age: 35 Year
  Sex: Male
  Weight: 70.65 kg

DRUGS (5)
  1. SEROQUEL [Concomitant]
     Active Substance: QUETIAPINE FUMARATE
  2. MULTIVITAMIN [Concomitant]
     Active Substance: VITAMINS
  3. LYRICA [Suspect]
     Active Substance: PREGABALIN
     Indication: NEURALGIA
     Dosage: ?          QUANTITY:21 CAPSULE(S);?
     Route: 048
     Dates: start: 20180601, end: 20191211
  4. PROBIOTICS [Concomitant]
     Active Substance: PROBIOTICS NOS
  5. GABAPENTIN. [Suspect]
     Active Substance: GABAPENTIN
     Indication: NEURALGIA
     Dosage: ?          QUANTITY:90 TABLET(S);?
     Route: 048
     Dates: start: 20191203, end: 20191210

REACTIONS (5)
  - Arthralgia [None]
  - Dyspnoea [None]
  - Pneumonia [None]
  - Weight decreased [None]
  - Neuralgia [None]

NARRATIVE: CASE EVENT DATE: 20180915
